FAERS Safety Report 11675212 (Version 1)
Quarter: 2015Q4

REPORT INFORMATION
  Report Type: Spontaneous
  Country: US (occurrence: US)
  Receive Date: 20151027
  Receipt Date: 20151027
  Transmission Date: 20160304
  Serious: No
  Sender: FDA-Public Use
  Company Number: US-ELI_LILLY_AND_COMPANY-US201008007867

PATIENT
  Sex: Female

DRUGS (3)
  1. CRESTOR [Concomitant]
     Active Substance: ROSUVASTATIN CALCIUM
  2. FORTEO [Suspect]
     Active Substance: TERIPARATIDE
     Indication: OSTEOPOROSIS
     Dosage: 20 UG, DAILY (1/D)
     Route: 065
  3. SYNTHROID [Concomitant]
     Active Substance: LEVOTHYROXINE SODIUM

REACTIONS (12)
  - Feeling hot [Unknown]
  - Hyperhidrosis [Unknown]
  - Musculoskeletal discomfort [Unknown]
  - Spinal pain [Unknown]
  - Injection site bruising [Unknown]
  - Back pain [Unknown]
  - Rotator cuff syndrome [Unknown]
  - Joint injury [Unknown]
  - Fatigue [Unknown]
  - Drug interaction [Unknown]
  - Muscular weakness [Unknown]
  - Pain [Unknown]
